FAERS Safety Report 7644507 (Version 2)
Quarter: 2014Q1

REPORT INFORMATION
  Report Type: Spontaneous
  Country: US (occurrence: US)
  Receive Date: 20101028
  Receipt Date: 20140116
  Transmission Date: 20141002
  Serious: Yes (Other)
  Sender: FDA-Public Use
  Company Number: US-BAYER-201038245NA

PATIENT
  Age: 46 Year
  Sex: Female

DRUGS (7)
  1. YASMIN [Suspect]
     Indication: PRODUCT USED FOR UNKNOWN INDICATION
     Route: 048
     Dates: start: 200507
  2. PATANOL [Concomitant]
     Dosage: UNK %, UNK
     Route: 047
     Dates: start: 20060510, end: 20060929
  3. ALPRAZOLAM [Concomitant]
     Dosage: 0.5 MG, UNK
  4. TOBRADEX [Concomitant]
     Route: 047
  5. FLONASE [Concomitant]
     Dosage: UNK UNK, PRN
  6. ALLEGRA [Concomitant]
     Dosage: UNK UNK, PRN
  7. PROTONIX [Concomitant]
     Dosage: 40 MG, UNK
     Dates: start: 20050520, end: 20070719

REACTIONS (3)
  - Gallbladder injury [Unknown]
  - Cholecystitis acute [None]
  - Pain [Unknown]
